FAERS Safety Report 7537804-2 (Version None)
Quarter: 2011Q2

REPORT INFORMATION
  Report Type: 
  Country: None (occurrence: None)
  Receive Date: 20110603
  Receipt Date: 20110518
  Transmission Date: 20111010
  Serious: Yes (Hospitalization)
  Sender: FDA-Public Use
  Company Number: 2011MA006054

PATIENT
  Age: 46 Year
  Sex: Male

DRUGS (3)
  1. RIFAMPIN [Suspect]
     Indication: MYCOBACTERIUM ULCERANS INFECTION
     Dosage: 300 MG; BID
  2. CIPROFLOXACIN [Concomitant]
  3. CLARITHROMYCIN [Concomitant]

REACTIONS (10)
  - GENERAL PHYSICAL HEALTH DETERIORATION [None]
  - FLUCTUANCE [None]
  - BURSITIS [None]
  - NECROSIS [None]
  - PARADOXICAL DRUG REACTION [None]
  - ERYTHEMA [None]
  - INFLAMMATION [None]
  - CELLULITIS [None]
  - INDURATION [None]
  - TREATMENT FAILURE [None]
